FAERS Safety Report 6119266-5 (Version None)
Quarter: 2009Q1

REPORT INFORMATION
  Report Type: 
  Country: None (occurrence: None)
  Receive Date: 20090316
  Receipt Date: 20090304
  Transmission Date: 20090719
  Serious: Yes (Other)
  Sender: FDA-Public Use
  Company Number: IN-WYE-H08493409

PATIENT
  Age: 74 Year
  Sex: Male

DRUGS (2)
  1. PANTOPRAZOLE SODIUM [Suspect]
     Indication: DYSPEPSIA
     Dosage: 40-80 MG/DAY
  2. PANTOPRAZOLE SODIUM [Suspect]
     Indication: REGURGITATION

REACTIONS (3)
  - ACHLORHYDRIA [None]
  - GASTRITIS ATROPHIC [None]
  - METAPLASIA [None]
